FAERS Safety Report 4333222-9 (Version None)
Quarter: 2004Q2

REPORT INFORMATION
  Report Type: 
  Country: None (occurrence: None)
  Receive Date: 20040401
  Receipt Date: 20040315
  Transmission Date: 20050107
  Serious: Yes (Disabling)
  Sender: FDA-Public Use
  Company Number: DSA_24118_2004

PATIENT
  Age: 43 Year
  Sex: Male

DRUGS (5)
  1. ATIVAN [Suspect]
     Indication: ANXIETY
     Dosage: VAR Q DAY PO
     Route: 048
     Dates: end: 20031222
  2. ATIVAN [Suspect]
     Indication: ANXIETY
     Dates: start: 20040119
  3. EFFEXOR XR [Suspect]
     Indication: DEPRESSION
     Dosage: 150 MG BID PO
     Route: 048
     Dates: start: 19990901, end: 20031114
  4. LEXAPRO [Concomitant]
  5. LITHIUM [Concomitant]

REACTIONS (13)
  - AFFECT LABILITY [None]
  - ANXIETY [None]
  - BALANCE DISORDER [None]
  - COGNITIVE DISORDER [None]
  - COORDINATION ABNORMAL [None]
  - DIARRHOEA [None]
  - DISTURBANCE IN ATTENTION [None]
  - DRUG ABUSER [None]
  - DRUG WITHDRAWAL SYNDROME [None]
  - FATIGUE [None]
  - FEAR [None]
  - MEMORY IMPAIRMENT [None]
  - TREMOR [None]
